FAERS Safety Report 15396887 (Version 1)
Quarter: 2018Q3

REPORT INFORMATION
  Report Type: Spontaneous
  Country: US (occurrence: US)
  Receive Date: 20180913
  Receipt Date: 20180913
  Transmission Date: 20181010
  Serious: Yes (Other)
  Sender: FDA-Public Use
  Company Number: None

PATIENT
  Age: 29 Year
  Sex: Female
  Weight: 61.65 kg

DRUGS (6)
  1. CONTRAVE [Concomitant]
     Active Substance: BUPROPION HYDROCHLORIDE\NALTREXONE HYDROCHLORIDE
  2. ELETRIPTAN HYDROBROMIDE. [Suspect]
     Active Substance: ELETRIPTAN HYDROBROMIDE
     Indication: MIGRAINE
     Dosage: ?          QUANTITY:6 TABLET(S);?
     Route: 048
     Dates: start: 20180910, end: 20180910
  3. PROPRANOLOL [Concomitant]
     Active Substance: PROPRANOLOL HYDROCHLORIDE
  4. PRENATAL VITAMIN [Concomitant]
     Active Substance: VITAMINS
  5. LOLOESTRINE [Concomitant]
  6. NEXIUM [Concomitant]
     Active Substance: ESOMEPRAZOLE MAGNESIUM

REACTIONS (5)
  - Rash [None]
  - Hypertension [None]
  - Flushing [None]
  - Product substitution issue [None]
  - Feeling drunk [None]

NARRATIVE: CASE EVENT DATE: 20180910
